FAERS Safety Report 17455731 (Version 3)
Quarter: 2020Q2

REPORT INFORMATION
  Report Type: Report from Study
  Country: CA (occurrence: CA)
  Receive Date: 20200225
  Receipt Date: 20200623
  Transmission Date: 20200713
  Serious: Yes (Hospitalization)
  Sender: FDA-Public Use
  Company Number: NVSC2019CA068367

PATIENT
  Sex: Male

DRUGS (2)
  1. REVOLADE [Suspect]
     Active Substance: ELTROMBOPAG
     Dosage: 75 MG
     Route: 048
     Dates: start: 20190925
  2. REVOLADE [Suspect]
     Active Substance: ELTROMBOPAG
     Indication: IMMUNE THROMBOCYTOPENIA
     Dosage: 50 MG,
     Route: 048
     Dates: start: 20190925

REACTIONS (5)
  - Platelet count decreased [Recovering/Resolving]
  - Pneumonia [Unknown]
  - Drug ineffective [Unknown]
  - Nervousness [Recovering/Resolving]
  - Contusion [Unknown]
